FAERS Safety Report 19898617 (Version 2)
Quarter: 2021Q4

REPORT INFORMATION
  Report Type: Report from Study
  Country: MX (occurrence: MX)
  Receive Date: 20210929
  Receipt Date: 20211118
  Transmission Date: 20220303
  Serious: Yes (Other)
  Sender: FDA-Public Use
  Company Number: MX-NOVARTISPH-NVSC2021MX220820

PATIENT
  Age: 83 Year
  Sex: Female
  Weight: 70 kg

DRUGS (6)
  1. EXELON [Suspect]
     Active Substance: RIVASTIGMINE TARTRATE
     Indication: Dementia
     Dosage: 4.6 MG, QD (9.0 MG RIVASTIGMINE BASE (PATCH 5.0 (CM2)) (APPROXIMATELY 2 YEARS AGO)
     Route: 003
     Dates: start: 2019
  2. MEMANTINE HYDROCHLORIDE [Concomitant]
     Active Substance: MEMANTINE HYDROCHLORIDE
     Indication: Feeling of relaxation
     Dosage: 1 OF 10 MG, QD
     Route: 048
     Dates: start: 2019
  3. FLUOXETINE [Concomitant]
     Active Substance: FLUOXETINE HYDROCHLORIDE
     Indication: Feeling of relaxation
     Dosage: 1 OF 20 MG, QD (IN THE MORNING)
     Route: 048
     Dates: start: 2019
  4. QUETIAPINE [Concomitant]
     Active Substance: QUETIAPINE
     Indication: Feeling of relaxation
     Dosage: 1 OF 100 MG, QD (IN NIGHT)
     Route: 048
     Dates: start: 2019
  5. LIMBIK [Concomitant]
     Indication: Feeling of relaxation
     Dosage: 0.5 OF 2 MG, QD
     Route: 048
     Dates: start: 2019
  6. ENALAPRIL [Concomitant]
     Active Substance: ENALAPRIL
     Indication: Blood pressure abnormal
     Dosage: UNK 2 (UNITS NOT PROVIDED), QD 10 YEARS AGO
     Route: 048

REACTIONS (3)
  - Multiple fractures [Recovering/Resolving]
  - Forearm fracture [Recovering/Resolving]
  - Fall [Recovering/Resolving]

NARRATIVE: CASE EVENT DATE: 20210910
